FAERS Safety Report 5030629-1 (Version None)
Quarter: 2006Q2

REPORT INFORMATION
  Report Type: 
  Country: None (occurrence: None)
  Receive Date: 20060615
  Receipt Date: 20060607
  Transmission Date: 20061013
  Serious: Yes (Hospitalization)
  Sender: FDA-Public Use
  Company Number: 2006058212

PATIENT
  Age: 65 Year
  Sex: Male
  Weight: 90.7194 kg

DRUGS (1)
  1. CELEBREX [Suspect]
     Indication: BACK PAIN
     Dosage: 400 MG (200 MG)
     Dates: end: 20040401

REACTIONS (12)
  - ACUTE CORONARY SYNDROME [None]
  - AORTIC DILATATION [None]
  - CARDIOMEGALY [None]
  - CORONARY ARTERY RESTENOSIS [None]
  - DUODENITIS [None]
  - GASTRITIS EROSIVE [None]
  - GASTROINTESTINAL HAEMORRHAGE [None]
  - HAEMATOCRIT DECREASED [None]
  - MYOCARDIAL INFARCTION [None]
  - PERICARDIAL EFFUSION [None]
  - PULMONARY CONGESTION [None]
  - PULMONARY HYPERTENSION [None]
